FAERS Safety Report 16589200 (Version 1)
Quarter: 2019Q3

REPORT INFORMATION
  Report Type: Spontaneous
  Country: US (occurrence: US)
  Receive Date: 20190718
  Receipt Date: 20190718
  Transmission Date: 20191004
  Serious: No
  Sender: FDA-Public Use
  Company Number: US-009507513-1906USA008315

PATIENT
  Sex: Female

DRUGS (4)
  1. CRESTOR [Suspect]
     Active Substance: ROSUVASTATIN CALCIUM
  2. LIPITOR [Suspect]
     Active Substance: ATORVASTATIN CALCIUM
  3. ZOCOR [Suspect]
     Active Substance: SIMVASTATIN
     Route: 048
  4. VYTORIN [Suspect]
     Active Substance: EZETIMIBE\SIMVASTATIN
     Dosage: UNK
     Route: 048

REACTIONS (4)
  - Myalgia [Unknown]
  - Arthralgia [Unknown]
  - Drug intolerance [Unknown]
  - Blood cholesterol increased [Unknown]
